FAERS Safety Report 9063012 (Version 4)
Quarter: 2013Q2

REPORT INFORMATION
  Report Type: Spontaneous
  Country: DK (occurrence: DK)
  Receive Date: 20130213
  Receipt Date: 20130501
  Transmission Date: 20140414
  Serious: Yes (Hospitalization, Other)
  Sender: FDA-Public Use
  Company Number: DK-ELI_LILLY_AND_COMPANY-DK201302001251

PATIENT
  Age: 34 Year
  Sex: Male
  Weight: 90 kg

DRUGS (1)
  1. ZYPADHERA [Suspect]
     Indication: SCHIZOPHRENIA
     Dosage: 405 MG, 2/M
     Route: 030
     Dates: start: 20120802

REACTIONS (13)
  - Malaise [Unknown]
  - Pyrexia [Recovered/Resolved]
  - Hypotension [Not Recovered/Not Resolved]
  - Diplopia [Unknown]
  - Feeling abnormal [Unknown]
  - Heart rate increased [Unknown]
  - Nasopharyngitis [Unknown]
  - C-reactive protein increased [Unknown]
  - Leukocytosis [Recovered/Resolved]
  - Chills [Unknown]
  - Groin pain [Unknown]
  - Hot flush [Unknown]
  - Prescribed overdose [Unknown]
